FAERS Safety Report 9934218 (Version 1)
Quarter: 2014Q1

REPORT INFORMATION
  Report Type: Spontaneous
  Country: US (occurrence: US)
  Receive Date: 20140228
  Receipt Date: 20140228
  Transmission Date: 20141002
  Serious: Yes (Hospitalization, Other)
  Sender: FDA-Public Use
  Company Number: US-ASTRAZENECA-2014SE12261

PATIENT
  Age: 64 Year
  Sex: Male
  Weight: 74.4 kg

DRUGS (4)
  1. NEXIUM [Suspect]
     Indication: ABDOMINAL PAIN UPPER
     Route: 048
     Dates: start: 201311, end: 201311
  2. NEXIUM [Suspect]
     Indication: ABDOMINAL PAIN UPPER
     Dosage: AS NEEDED
     Route: 048
  3. ANTI-EMETIC [Concomitant]
     Indication: NAUSEA
     Dosage: UNKNOWN
     Dates: start: 201402
  4. PERCOCET [Concomitant]
     Indication: PAIN
     Dosage: UNKNOWN
     Dates: start: 201401

REACTIONS (6)
  - Hypotension [Unknown]
  - Dehydration [Unknown]
  - Pancreatic carcinoma [Unknown]
  - Weight decreased [Unknown]
  - Off label use [Unknown]
  - Off label use [Unknown]
